FAERS Safety Report 10136763 (Version 1)
Quarter: 2014Q2

REPORT INFORMATION
  Report Type: Spontaneous
  Country: US (occurrence: None)
  Receive Date: 20140428
  Receipt Date: 20140428
  Transmission Date: 20141212
  Serious: Yes (Hospitalization)
  Sender: FDA-Public Use
  Company Number: None

PATIENT
  Age: 69 Year
  Sex: Male

DRUGS (2)
  1. CIMZIA 200 MG PFS 2/PKG [Suspect]
     Indication: CROHN^S DISEASE
     Dosage: INJECT 400 MG UNDER THE SKIN ONCE MONTHLY
     Dates: start: 20130514
  2. CIMZIA 200 MG PFS 2/PKG [Suspect]
     Dosage: INJECT 400 MG UNDER THE SKIN ONCE MONTHLY
     Dates: start: 20130514

REACTIONS (7)
  - Vesical fistula [None]
  - Urinary tract infection [None]
  - Escherichia sepsis [None]
  - Ligament rupture [None]
  - Upper respiratory tract infection [None]
  - Sinus disorder [None]
  - Cough [None]
